FAERS Safety Report 6405767-9 (Version None)
Quarter: 2009Q4

REPORT INFORMATION
  Report Type: 
  Country: None (occurrence: None)
  Receive Date: 20091016
  Receipt Date: 20091016
  Transmission Date: 20100525
  Serious: No
  Sender: FDA-Public Use
  Company Number: None

PATIENT
  Age: 29 Year
  Sex: Male
  Weight: 75 kg

DRUGS (2)
  1. ASPIRIN [Suspect]
     Dosage: 2 MG ONCE SUBLINGUAL
     Route: 060
     Dates: start: 20091007, end: 20091009
  2. ASPIRIN [Suspect]
     Dates: start: 20091001, end: 20091013

REACTIONS (1)
  - NO ADVERSE EVENT [None]
